FAERS Safety Report 20168129 (Version 1)
Quarter: 2021Q4

REPORT INFORMATION
  Report Type: Spontaneous
  Country: US (occurrence: US)
  Receive Date: 20211210
  Receipt Date: 20211210
  Transmission Date: 20220303
  Serious: Yes (Hospitalization)
  Sender: FDA-Public Use
  Company Number: US-JNJFOC-20211163510

PATIENT
  Age: 44 Year
  Sex: Female
  Weight: 60 kg

DRUGS (2)
  1. TYLENOL [Suspect]
     Active Substance: ACETAMINOPHEN
     Indication: Product used for unknown indication
     Dosage: TOTAL DOSE: 9750MG OF ACETAMINOPHEN (1950MG/DAY) OVER A PERIOD OF 5 DAYS PERIOD ENDING ON 11/NOV/200
     Route: 048
     Dates: end: 20001111
  2. EXCEDRIN PM [Suspect]
     Active Substance: ACETAMINOPHEN\DIPHENHYDRAMINE\DIPHENHYDRAMINE CITRATE
     Indication: Product used for unknown indication
     Dosage: UNKNOWN DOSE
     Route: 065

REACTIONS (5)
  - Acute hepatic failure [Recovered/Resolved]
  - Encephalopathy [Recovered/Resolved]
  - Product administration error [Recovered/Resolved]
  - Alcohol withdrawal syndrome [Not Recovered/Not Resolved]
  - Overdose [Recovered/Resolved]
